FAERS Safety Report 5826034-8 (Version None)
Quarter: 2008Q3

REPORT INFORMATION
  Report Type: 
  Country: None (occurrence: None)
  Receive Date: 20080729
  Receipt Date: 20080722
  Transmission Date: 20090109
  Serious: Yes (Hospitalization, Other)
  Sender: FDA-Public Use
  Company Number: US-JNJFOC-20080705866

PATIENT
  Age: 6 Decade
  Sex: Male

DRUGS (2)
  1. LEVAQUIN [Suspect]
     Indication: INFECTION
     Route: 048
  2. UNKNOWN MEDICATION [Concomitant]

REACTIONS (4)
  - ANAPHYLACTIC REACTION [None]
  - BRONCHOSPASM [None]
  - HOSPITALISATION [None]
  - OSTEOARTHRITIS [None]
